FAERS Safety Report 23220326 (Version 1)
Quarter: 2023Q4

REPORT INFORMATION
  Report Type: Spontaneous
  Country: US (occurrence: US)
  Receive Date: 20231123
  Receipt Date: 20231123
  Transmission Date: 20240109
  Serious: No
  Sender: FDA-Public Use
  Company Number: US-AMGEN-USASP2023207449

PATIENT
  Age: 27 Year
  Sex: Female

DRUGS (1)
  1. NEUPOGEN [Suspect]
     Active Substance: FILGRASTIM
     Indication: Combined immunodeficiency
     Dosage: 7.15 MICROGRAM/KILOGRAM, QOD
     Route: 065

REACTIONS (1)
  - Blood immunoglobulin A decreased [Unknown]
